FAERS Safety Report 13794622 (Version 1)
Quarter: 2017Q3

REPORT INFORMATION
  Report Type: Spontaneous
  Country: US (occurrence: US)
  Receive Date: 20170726
  Receipt Date: 20170726
  Transmission Date: 20171127
  Serious: Yes (Hospitalization)
  Sender: FDA-Public Use
  Company Number: US-PFIZER INC-2017322122

PATIENT
  Age: 46 Year
  Sex: Female
  Weight: 118.84 kg

DRUGS (2)
  1. LYRICA [Suspect]
     Active Substance: PREGABALIN
     Indication: GUILLAIN-BARRE SYNDROME
     Dosage: 100 MG, 3X/DAY
     Route: 048
     Dates: start: 2014, end: 201704
  2. AFAXIN [Concomitant]
     Indication: HEPATIC CIRRHOSIS
     Dosage: 550 MG, 2X/DAY
     Dates: start: 2014

REACTIONS (5)
  - Guillain-Barre syndrome [Unknown]
  - Dyspnoea [Unknown]
  - Product use in unapproved indication [Unknown]
  - Pain [Unknown]
  - Swelling [Unknown]

NARRATIVE: CASE EVENT DATE: 2014
